FAERS Safety Report 24575554 (Version 1)
Quarter: 2024Q4

REPORT INFORMATION
  Report Type: Spontaneous
  Country: US (occurrence: None)
  Receive Date: 20241101
  Receipt Date: 20241101
  Transmission Date: 20250114
  Serious: Yes (Life-Threatening, Hospitalization)
  Sender: Public
  Company Number: None

PATIENT
  Age: 72 Year
  Sex: Female
  Weight: 70.2 kg

DRUGS (1)
  1. ABECMA [Suspect]
     Active Substance: IDECABTAGENE VICLEUCEL
     Indication: Plasma cell myeloma
     Route: 042
     Dates: start: 20240918, end: 20240918

REACTIONS (3)
  - Immune effector cell-associated neurotoxicity syndrome [None]
  - Status epilepticus [None]
  - Cardiomyopathy [None]

NARRATIVE: CASE EVENT DATE: 20240929
